FAERS Safety Report 9948382 (Version 1)
Quarter: 2014Q1

REPORT INFORMATION
  Report Type: Spontaneous
  Country: US (occurrence: None)
  Receive Date: 20140122
  Receipt Date: 20140122
  Transmission Date: 20141002
  Serious: Yes (Hospitalization)
  Sender: FDA-Public Use
  Company Number: PHEH2013US021431

PATIENT
  Age: 15 Year
  Sex: Male
  Weight: 44 kg

DRUGS (5)
  1. TOBI PODHALER [Suspect]
     Indication: CYSTIC FIBROSIS
     Dosage: 28 MG , DAILY (TOOK TOBI PODHALER EVERY OTHER MONTH), INHALATION
     Route: 055
  2. CAYSTON (AZTRENONAM LYSINE) [Concomitant]
  3. AZITHROMYCIN (AZITHROMYCIN) [Concomitant]
  4. DORNASE ALFA (DORNASE ALFA) [Concomitant]
  5. BECLAMIDE (BECLAMIDE) [Concomitant]

REACTIONS (7)
  - Cough [None]
  - Dyspnoea [None]
  - Wheezing [None]
  - Device malfunction [None]
  - Drug ineffective [None]
  - Cystic fibrosis [None]
  - Condition aggravated [None]
